FAERS Safety Report 10738463 (Version 1)
Quarter: 2015Q1

REPORT INFORMATION
  Report Type: Spontaneous
  Country: US (occurrence: US)
  Receive Date: 20150126
  Receipt Date: 20150126
  Transmission Date: 20150721
  Serious: Yes (Hospitalization, Other)
  Sender: FDA-Public Use
  Company Number: US-ACTAVIS-2015-00790

PATIENT
  Age: 33 Year
  Sex: Female

DRUGS (4)
  1. METHADONE [Concomitant]
     Active Substance: METHADONE HYDROCHLORIDE
     Indication: DRUG WITHDRAWAL MAINTENANCE THERAPY
     Dosage: UNK
     Route: 065
  2. LEVETIRACETAM (WATSON LABORATORIES) [Suspect]
     Active Substance: LEVETIRACETAM
     Dosage: 1000 MG, BID
     Route: 065
  3. LEVETIRACETAM (WATSON LABORATORIES) [Suspect]
     Active Substance: LEVETIRACETAM
     Dosage: 500 MG, BID
     Route: 065
  4. LEVETIRACETAM (WATSON LABORATORIES) [Suspect]
     Active Substance: LEVETIRACETAM
     Indication: EPILEPSY
     Dosage: 1250 MG, BID
     Route: 065

REACTIONS (2)
  - Substance-induced psychotic disorder [Recovered/Resolved]
  - Maternal exposure during pregnancy [Recovered/Resolved]
